FAERS Safety Report 8152089 (Version 4)
Quarter: 2013Q2

REPORT INFORMATION
  Report Type: Spontaneous
  Country: US (occurrence: US)
  Receive Date: 20110922
  Receipt Date: 20130430
  Transmission Date: 20140414
  Serious: Yes (Hospitalization, Other)
  Sender: FDA-Public Use
  Company Number: US-ASTRAZENECA-2011SE12602

PATIENT
  Age: 35 Year
  Sex: Female

DRUGS (24)
  1. SEROQUEL [Suspect]
     Route: 048
     Dates: start: 20020306
  2. SEROQUEL [Suspect]
     Route: 048
     Dates: start: 200210
  3. SEROQUEL [Suspect]
     Route: 048
     Dates: start: 20030404
  4. SEROQUEL [Suspect]
     Route: 048
     Dates: start: 20031204
  5. ALPRAZOLAM [Concomitant]
     Dates: start: 20031111
  6. BUTALBITAL/APAP/CAFFEINE [Concomitant]
     Dates: start: 20031111
  7. PROPOXY-N/APAP [Concomitant]
     Dosage: 100-650 TA
     Dates: start: 20031111
  8. LEXAPRO [Concomitant]
     Dates: start: 20031112
  9. TRILEPTAL [Concomitant]
     Dates: start: 20031112
  10. TRIAM/HCTZ [Concomitant]
     Dosage: 37.5/25
     Dates: start: 20031112
  11. CARTIA XT [Concomitant]
     Dates: start: 20031112
  12. THEOPHYLLINE [Concomitant]
     Route: 048
     Dates: start: 20030404
  13. RISPERDAL [Concomitant]
     Dates: start: 20030404
  14. DEPAKOTE [Concomitant]
     Dates: start: 20030404
  15. PAXIL [Concomitant]
     Dates: start: 20030404
  16. CLARITIN [Concomitant]
     Dates: start: 20030404
  17. AVELOX [Concomitant]
     Route: 048
     Dates: start: 20030404
  18. RHINOCORT [Concomitant]
  19. PROZAC [Concomitant]
  20. LITHIUM [Concomitant]
  21. POTASSIUM [Concomitant]
     Dates: start: 200210
  22. ALBUTEROL [Concomitant]
     Dates: start: 200210
  23. ADVAIR [Concomitant]
     Dosage: 100/50
     Dates: start: 200210
  24. LASIX [Concomitant]
     Dates: start: 200210

REACTIONS (3)
  - Diabetic coma [Unknown]
  - Pancreatitis [Unknown]
  - Type 2 diabetes mellitus [Unknown]
